FAERS Safety Report 8411733-4 (Version None)
Quarter: 2012Q2

REPORT INFORMATION
  Report Type: 
  Country: None (occurrence: None)
  Receive Date: 20120605
  Receipt Date: 20120531
  Transmission Date: 20120825
  Serious: Yes (Hospitalization, Other)
  Sender: FDA-Public Use
  Company Number: CH-PFIZER INC-2011152463

PATIENT
  Age: 72 Year
  Sex: Female

DRUGS (7)
  1. ISOPTIN [Interacting]
     Dosage: 240 MG, 1X/DAY
     Route: 048
     Dates: start: 20110225, end: 20110227
  2. GLUCOPHAGE [Suspect]
     Dosage: 1 DF, 1X/DAY
     Route: 048
     Dates: end: 20110227
  3. ASPIRIN [Concomitant]
     Dosage: UNK
     Route: 048
  4. ALDACTONE [Suspect]
     Dosage: 1 DF, 1X/DAY
     Route: 048
     Dates: end: 20110227
  5. ENALAPRIL MALEATE [Suspect]
     Dosage: UNK
     Route: 048
  6. METOPROLOL TARTRATE AND HYDROCHLOROTHIAZIDE [Interacting]
     Dosage: 1 DF, 1X/DAY
     Route: 048
     Dates: end: 20110227
  7. CRESTOR [Concomitant]
     Dosage: UNK
     Route: 048

REACTIONS (12)
  - RENAL FAILURE ACUTE [None]
  - HYPOTENSION [None]
  - ATRIOVENTRICULAR BLOCK COMPLETE [None]
  - DRUG INTERACTION [None]
  - DIZZINESS [None]
  - HYPERKALAEMIA [None]
  - ABDOMINAL PAIN UPPER [None]
  - NAUSEA [None]
  - CARDIOGENIC SHOCK [None]
  - LACTIC ACIDOSIS [None]
  - MALAISE [None]
  - HYPERGLYCAEMIA [None]
